FAERS Safety Report 21471096 (Version 1)
Quarter: 2022Q4

REPORT INFORMATION
  Report Type: Spontaneous
  Country: US (occurrence: US)
  Receive Date: 20221018
  Receipt Date: 20221018
  Transmission Date: 20230113
  Serious: No
  Sender: FDA-Public Use
  Company Number: US-ABBVIE-4137268

PATIENT
  Sex: Male

DRUGS (2)
  1. LUPRON [Suspect]
     Active Substance: LEUPROLIDE ACETATE
     Indication: Prostate cancer
     Route: 065
     Dates: start: 20181023, end: 20220301
  2. XGEVA [Concomitant]
     Active Substance: DENOSUMAB
     Indication: Bone disorder
     Route: 030

REACTIONS (3)
  - Dementia [Not Recovered/Not Resolved]
  - Hot flush [Unknown]
  - Cognitive disorder [Not Recovered/Not Resolved]

NARRATIVE: CASE EVENT DATE: 20210101
